FAERS Safety Report 22630842 (Version 1)
Quarter: 2023Q2

REPORT INFORMATION
  Report Type: Spontaneous
  Country: US (occurrence: None)
  Receive Date: 20230622
  Receipt Date: 20230622
  Transmission Date: 20230722
  Serious: No
  Sender: FDA-Public Use
  Company Number: None

PATIENT

DRUGS (2)
  1. AZELASTINE HYDROCHLORIDE [Suspect]
     Active Substance: AZELASTINE HYDROCHLORIDE
  2. FORMOTEROL [Suspect]
     Active Substance: FORMOTEROL

REACTIONS (4)
  - Product prescribing error [None]
  - Product dispensing error [None]
  - Incorrect product formulation administered [None]
  - Wrong product administered [None]

NARRATIVE: CASE EVENT DATE: 20230319
